FAERS Safety Report 4365434-2 (Version None)
Quarter: 2004Q2

REPORT INFORMATION
  Report Type: 
  Country: None (occurrence: None)
  Receive Date: 20040525
  Receipt Date: 20040525
  Transmission Date: 20050107
  Serious: Yes (Hospitalization, Other)
  Sender: FDA-Public Use
  Company Number: None

PATIENT
  Age: 84 Year
  Sex: Female
  Weight: 48.4 kg

DRUGS (16)
  1. DIGOXIN [Suspect]
     Indication: ATRIAL FIBRILLATION
     Dosage: 0.125 MG DAILY
     Dates: end: 20041120
  2. ASPIRIN [Concomitant]
  3. ZOLOFT [Concomitant]
  4. ACTONEL [Concomitant]
  5. MULTI-VITAMIN [Concomitant]
  6. LISINOPRIL [Concomitant]
  7. FOLIC ACID [Concomitant]
  8. SURFAK [Concomitant]
  9. TYLENOL [Concomitant]
  10. ARICEPT [Concomitant]
  11. METOPROLOL TARTRATE [Concomitant]
  12. HYOSCYAMINE [Concomitant]
  13. IRON [Concomitant]
  14. CALCIUM W/D [Concomitant]
  15. CLONAZEPAM [Concomitant]
  16. MOM [Concomitant]

REACTIONS (9)
  - ANOREXIA [None]
  - BLOOD CREATININE INCREASED [None]
  - BLOOD UREA INCREASED [None]
  - DEHYDRATION [None]
  - DRUG LEVEL INCREASED [None]
  - FAECAL OCCULT BLOOD POSITIVE [None]
  - FLUID INTAKE REDUCED [None]
  - MARKEDLY REDUCED DIETARY INTAKE [None]
  - MENTAL STATUS CHANGES [None]
